FAERS Safety Report 16552170 (Version 2)
Quarter: 2019Q3

REPORT INFORMATION
  Report Type: Report from Study
  Country: US (occurrence: US)
  Receive Date: 20190710
  Receipt Date: 20190715
  Transmission Date: 20191004
  Serious: Yes (Death, Other)
  Sender: FDA-Public Use
  Company Number: US-PFIZER INC-2019289915

PATIENT
  Age: 54 Year
  Sex: Female

DRUGS (2)
  1. BENZATHINE BENZYLPENICILLIN [Suspect]
     Active Substance: PENICILLIN G BENZATHINE
     Indication: ENDOCARDITIS PROPHYLAXIS
     Dosage: 1.2 MILLION IU, 2ML
     Route: 030
     Dates: start: 195612
  2. BENZATHINE BENZYLPENICILLIN [Suspect]
     Active Substance: PENICILLIN G BENZATHINE
     Indication: ANTIBIOTIC THERAPY
     Dosage: 1.2 MILLION IU, EVERY 4 WEEKS, 2ML, FIRST DOSE
     Route: 030
     Dates: start: 195506

REACTIONS (1)
  - Anaphylactic reaction [Fatal]

NARRATIVE: CASE EVENT DATE: 195612
